FAERS Safety Report 4309850-3 (Version None)
Quarter: 2004Q1

REPORT INFORMATION
  Report Type: 
  Country: None (occurrence: None)
  Receive Date: 20040227
  Receipt Date: 20031111
  Transmission Date: 20041129
  Serious: No
  Sender: FDA-Public Use
  Company Number: MPS1-10129

PATIENT
  Age: 9 Year
  Sex: Female
  Weight: 18.2 kg

DRUGS (1)
  1. ALDURAZYME [Suspect]
     Indication: MUCOPOLYSACCHARIDOSIS I
     Dates: start: 20030801

REACTIONS (2)
  - FATIGUE [None]
  - SOMNOLENCE [None]
